FAERS Safety Report 6326391-2 (Version None)
Quarter: 2009Q3

REPORT INFORMATION
  Report Type: 
  Country: None (occurrence: None)
  Receive Date: 20090824
  Receipt Date: 20080910
  Transmission Date: 20100115
  Serious: No
  Sender: FDA-Public Use
  Company Number: US-ABBOTT-08P-163-0474799-00

PATIENT
  Sex: Male
  Weight: 120 kg

DRUGS (15)
  1. NIASPAN [Suspect]
     Indication: LOW DENSITY LIPOPROTEIN INCREASED
     Route: 048
     Dates: start: 20080823
  2. NIASPAN [Suspect]
     Indication: HIGH DENSITY LIPOPROTEIN DECREASED
  3. INSULIN ASPART [Concomitant]
     Indication: DRUG USE FOR UNKNOWN INDICATION
  4. LANTUS [Concomitant]
     Indication: DRUG USE FOR UNKNOWN INDICATION
  5. ISOSORBIDE DINITRATE [Concomitant]
     Indication: DRUG USE FOR UNKNOWN INDICATION
  6. METOPROLOL SUCCINATE [Concomitant]
     Indication: DRUG USE FOR UNKNOWN INDICATION
  7. INDAPAMIDE [Concomitant]
     Indication: DRUG USE FOR UNKNOWN INDICATION
  8. BUMETANIDE [Concomitant]
     Indication: DRUG USE FOR UNKNOWN INDICATION
  9. OMEPRAZOLE SODIUM [Concomitant]
     Indication: DRUG USE FOR UNKNOWN INDICATION
  10. METOLAZONE [Concomitant]
     Indication: DRUG USE FOR UNKNOWN INDICATION
  11. ROPINIROLE HYDROCHLORIDE [Concomitant]
     Indication: DRUG USE FOR UNKNOWN INDICATION
  12. MELOXICAM [Concomitant]
     Indication: DRUG USE FOR UNKNOWN INDICATION
  13. ASPIRIN [Concomitant]
     Indication: DRUG USE FOR UNKNOWN INDICATION
  14. FOLIC ACID [Concomitant]
     Indication: DRUG USE FOR UNKNOWN INDICATION
  15. NITROGLYCERINE TABLETS [Concomitant]
     Indication: DRUG USE FOR UNKNOWN INDICATION

REACTIONS (2)
  - BLOOD GLUCOSE INCREASED [None]
  - FLUSHING [None]
